FAERS Safety Report 5292645-4 (Version None)
Quarter: 2007Q2

REPORT INFORMATION
  Report Type: 
  Country: None (occurrence: None)
  Receive Date: 20070404
  Receipt Date: 20070319
  Transmission Date: 20071010
  Serious: Yes (Hospitalization, Other)
  Sender: FDA-Public Use
  Company Number: ACO_0304_2006

PATIENT
  Age: 76 Year
  Sex: Female
  Weight: 52 kg

DRUGS (11)
  1. TERNELIN [Suspect]
     Indication: BACK PAIN
     Dosage: 1 MG TID PO
     Route: 048
     Dates: start: 20061006, end: 20061213
  2. CONIEL [Suspect]
     Indication: HYPERTENSION
     Dosage: DF
     Dates: end: 20061109
  3. TENORMIN [Suspect]
     Indication: HYPERTENSION
     Dosage: 25 MG QDAY PO
     Route: 048
     Dates: start: 20061109, end: 20061208
  4. OPALMON [Concomitant]
  5. LOXONIN [Concomitant]
  6. KELNAC [Concomitant]
  7. BONALON [Concomitant]
  8. MEVALOTIN [Concomitant]
  9. HALCION [Concomitant]
  10. ELCITONIN [Concomitant]
  11. NSAID'S [Concomitant]

REACTIONS (10)
  - ALANINE AMINOTRANSFERASE INCREASED [None]
  - ASPARTATE AMINOTRANSFERASE INCREASED [None]
  - BLOOD LACTATE DEHYDROGENASE INCREASED [None]
  - BLOOD PRESSURE INCREASED [None]
  - CONDITION AGGRAVATED [None]
  - GAMMA-GLUTAMYLTRANSFERASE INCREASED [None]
  - HEART RATE INCREASED [None]
  - LIVER DISORDER [None]
  - LYMPHOCYTE STIMULATION TEST POSITIVE [None]
  - NO THERAPEUTIC RESPONSE [None]
